FAERS Safety Report 7300535-8 (Version None)
Quarter: 2011Q1

REPORT INFORMATION
  Report Type: 
  Country: None (occurrence: None)
  Receive Date: 20110218
  Receipt Date: 20110207
  Transmission Date: 20110831
  Serious: Yes (Hospitalization, Other)
  Sender: FDA-Public Use
  Company Number: PL-AMGEN-POLSP2011007159

PATIENT
  Age: 65 Year
  Sex: Female
  Weight: 50 kg

DRUGS (7)
  1. IMOVANE [Concomitant]
     Dosage: UNK UNK, QD
     Route: 048
     Dates: start: 20100101
  2. FUROSEMIDE [Concomitant]
     Dosage: UNK UNK, TID
     Route: 048
     Dates: start: 20080101, end: 20101130
  3. CITALOPRAM [Concomitant]
     Dosage: UNK UNK, QD
     Route: 048
     Dates: start: 20090101
  4. ARANESP [Suspect]
     Indication: ANAEMIA
     Dosage: 30 A?G, Q2WK
     Route: 058
     Dates: end: 20110207
  5. SACCHARATED IRON OXIDE [Concomitant]
  6. ALFADIOL [Concomitant]
     Dosage: UNK UNK, TID
     Route: 048
     Dates: start: 20080101
  7. PRAZOL                             /00661201/ [Concomitant]
     Dosage: UNK UNK, QD
     Route: 048
     Dates: start: 20080101

REACTIONS (3)
  - BONE MARROW DISORDER [None]
  - HYPOCHROMIC ANAEMIA [None]
  - MONOCYTOSIS [None]
